FAERS Safety Report 23644226 (Version 1)
Quarter: 2024Q1

REPORT INFORMATION
  Report Type: Spontaneous
  Country: CZ (occurrence: CZ)
  Receive Date: 20240318
  Receipt Date: 20240318
  Transmission Date: 20240410
  Serious: Yes (Other)
  Sender: FDA-Public Use
  Company Number: CZ-ROCHE-3521860

PATIENT
  Sex: Male

DRUGS (17)
  1. DEXAMETHASONE [Suspect]
     Active Substance: DEXAMETHASONE
     Indication: Diffuse large B-cell lymphoma
     Route: 065
     Dates: start: 20210408, end: 20210624
  2. DOXORUBICIN [Suspect]
     Active Substance: DOXORUBICIN
     Indication: Diffuse large B-cell lymphoma
     Route: 065
     Dates: start: 20160120, end: 20160615
  3. DOXORUBICIN [Suspect]
     Active Substance: DOXORUBICIN
     Route: 065
     Dates: start: 20230724, end: 20230814
  4. POLIVY [Suspect]
     Active Substance: POLATUZUMAB VEDOTIN-PIIQ
     Indication: Diffuse large B-cell lymphoma
     Route: 065
     Dates: start: 20230904, end: 20240108
  5. VINCRISTINE [Suspect]
     Active Substance: VINCRISTINE
     Indication: Diffuse large B-cell lymphoma
     Route: 065
     Dates: start: 20160120, end: 20160615
  6. VINCRISTINE [Suspect]
     Active Substance: VINCRISTINE
     Route: 065
     Dates: start: 20230724, end: 20230814
  7. RITUXIMAB [Suspect]
     Active Substance: RITUXIMAB
     Indication: Diffuse large B-cell lymphoma
     Route: 065
     Dates: start: 20160120, end: 20160615
  8. RITUXIMAB [Suspect]
     Active Substance: RITUXIMAB
     Route: 065
     Dates: start: 20230904, end: 20240108
  9. RITUXIMAB [Suspect]
     Active Substance: RITUXIMAB
     Route: 065
     Dates: start: 20210408, end: 20210624
  10. RITUXIMAB [Suspect]
     Active Substance: RITUXIMAB
     Route: 065
     Dates: start: 20230724, end: 20230814
  11. CISPLATIN [Suspect]
     Active Substance: CISPLATIN
     Indication: Diffuse large B-cell lymphoma
     Route: 065
     Dates: start: 20210408, end: 20210624
  12. CYCLOPHOSPHAMIDE [Suspect]
     Active Substance: CYCLOPHOSPHAMIDE
     Indication: Diffuse large B-cell lymphoma
     Route: 065
     Dates: start: 20160120, end: 20160615
  13. CYCLOPHOSPHAMIDE [Suspect]
     Active Substance: CYCLOPHOSPHAMIDE
     Route: 065
     Dates: start: 20230724, end: 20230814
  14. GEMCITABINE [Suspect]
     Active Substance: GEMCITABINE
     Indication: Diffuse large B-cell lymphoma
     Route: 065
     Dates: start: 20210408, end: 20210624
  15. BENDAMUSTINE [Suspect]
     Active Substance: BENDAMUSTINE
     Indication: Diffuse large B-cell lymphoma
     Route: 065
     Dates: start: 20230904, end: 20240108
  16. PREDNISOLONE [Suspect]
     Active Substance: PREDNISOLONE
     Indication: Diffuse large B-cell lymphoma
     Route: 065
     Dates: start: 20230724, end: 20230814
  17. PREDNISOLONE [Suspect]
     Active Substance: PREDNISOLONE
     Route: 065
     Dates: start: 20160120, end: 20160615

REACTIONS (1)
  - Disease progression [Unknown]
